FAERS Safety Report 7161985-6 (Version None)
Quarter: 2010Q4

REPORT INFORMATION
  Report Type: 
  Country: None (occurrence: None)
  Receive Date: 20101215
  Receipt Date: 20101208
  Transmission Date: 20110411
  Serious: Yes (Hospitalization)
  Sender: FDA-Public Use
  Company Number: JP-ROCHE-682781

PATIENT
  Sex: Female
  Weight: 58 kg

DRUGS (9)
  1. TOCILIZUMAB [Suspect]
     Indication: CASTLEMAN'S DISEASE
     Route: 041
     Dates: start: 20090817, end: 20090831
  2. TOCILIZUMAB [Suspect]
     Route: 041
     Dates: start: 20090914, end: 20091013
  3. TOCILIZUMAB [Suspect]
     Route: 041
     Dates: start: 20091019, end: 20091019
  4. TOCILIZUMAB [Suspect]
     Route: 041
     Dates: start: 20091026, end: 20101206
  5. PREDNISOLONE [Concomitant]
     Dosage: DOSE FORM: ORAL FORMULATION (NOT OTHERWISE SPECIFIED)
     Route: 048
     Dates: start: 20090723, end: 20090830
  6. PREDNISOLONE [Concomitant]
     Route: 048
     Dates: start: 20090831
  7. FAMOTIDINE [Concomitant]
     Dosage: DRUG: BLOSTAR M.
     Route: 048
     Dates: start: 20090723, end: 20100607
  8. RELENZA [Concomitant]
     Dosage: DOSE FORM: RESPIRATORY TONIC
     Route: 055
     Dates: end: 20090904
  9. ZYRTEC [Concomitant]
     Route: 048
     Dates: start: 20100315

REACTIONS (6)
  - ANAEMIA [None]
  - BLADDER CANCER [None]
  - GASTROENTERITIS [None]
  - INFLUENZA [None]
  - INTERSTITIAL LUNG DISEASE [None]
  - PRURITUS [None]
